FAERS Safety Report 6600714-9 (Version None)
Quarter: 2010Q1

REPORT INFORMATION
  Report Type: 
  Country: None (occurrence: None)
  Receive Date: 20100223
  Receipt Date: 20100223
  Transmission Date: 20100710
  Serious: Yes (Hospitalization)
  Sender: FDA-Public Use
  Company Number: None

PATIENT
  Age: 72 Year
  Sex: Male
  Weight: 72.5755 kg

DRUGS (2)
  1. LINEZOLID [Suspect]
     Indication: WOUND INFECTION
     Dosage: 600 MG BID UNK PRIOR TO ADMISSION
  2. LINEZOLID [Concomitant]

REACTIONS (3)
  - HAEMATURIA [None]
  - HAEMORRHAGE [None]
  - PANCYTOPENIA [None]
